FAERS Safety Report 9859958 (Version 2)
Quarter: 2014Q1

REPORT INFORMATION
  Report Type: Spontaneous
  Country: IE (occurrence: IE)
  Receive Date: 20140131
  Receipt Date: 20140204
  Transmission Date: 20141002
  Serious: Yes (Hospitalization, Other)
  Sender: FDA-Public Use
  Company Number: IE-ABBVIE-14P-229-1196086-00

PATIENT
  Sex: Female

DRUGS (2)
  1. HUMIRA [Suspect]
     Indication: PRODUCT USED FOR UNKNOWN INDICATION
     Dosage: UNKNOWN
     Route: 058
  2. AREVA [Concomitant]
     Indication: PRODUCT USED FOR UNKNOWN INDICATION

REACTIONS (14)
  - Type 1 diabetes mellitus [Unknown]
  - Injection site pain [Recovering/Resolving]
  - Incorrect dose administered [Recovering/Resolving]
  - Grip strength decreased [Unknown]
  - Injection site bruising [Unknown]
  - Wrong technique in drug usage process [Recovering/Resolving]
  - Chest discomfort [Recovering/Resolving]
  - Unevaluable event [Recovering/Resolving]
  - Paraesthesia [Recovering/Resolving]
  - Gait disturbance [Recovering/Resolving]
  - Blood glucose decreased [Recovering/Resolving]
  - Blood pressure increased [Recovering/Resolving]
  - Blood glucose increased [Recovering/Resolving]
  - Rheumatoid arthritis [Unknown]
